FAERS Safety Report 20000459 (Version 2)
Quarter: 2022Q1

REPORT INFORMATION
  Report Type: Report from Study
  Country: US (occurrence: US)
  Receive Date: 20211027
  Receipt Date: 20220202
  Transmission Date: 20220423
  Serious: Yes (Hospitalization, Other)
  Sender: FDA-Public Use
  Company Number: US-ABBVIE-21K-163-4136241-00

PATIENT
  Age: 73 Year
  Sex: Female

DRUGS (2)
  1. IMBRUVICA [Suspect]
     Active Substance: IBRUTINIB
     Indication: Waldenstrom^s macroglobulinaemia
     Route: 048
     Dates: start: 20210127, end: 20211008
  2. IMBRUVICA [Suspect]
     Active Substance: IBRUTINIB
     Route: 048
     Dates: start: 20211013, end: 20211216

REACTIONS (10)
  - Micrographic skin surgery [Unknown]
  - Hospitalisation [Unknown]
  - Drug ineffective [Unknown]
  - White blood cell count increased [Unknown]
  - Immunoglobulins increased [Unknown]
  - Back pain [Unknown]
  - Pneumonia [Unknown]
  - Atrial fibrillation [Unknown]
  - Localised infection [Unknown]
  - Pleural effusion [Unknown]

NARRATIVE: CASE EVENT DATE: 20211011
